FAERS Safety Report 5117301-4 (Version None)
Quarter: 2006Q3

REPORT INFORMATION
  Report Type: 
  Country: None (occurrence: None)
  Receive Date: 20060927
  Receipt Date: 20060927
  Transmission Date: 20061208
  Serious: No
  Sender: FDA-Public Use
  Company Number: None

PATIENT
  Age: 39 Year
  Sex: Female
  Weight: 54.5 kg

DRUGS (1)
  1. PHENERGAN [Suspect]
     Indication: MIGRAINE
     Dosage: 12.5 MG ONCE IV
     Route: 042
     Dates: start: 20060715

REACTIONS (1)
  - THROMBOPHLEBITIS [None]
